FAERS Safety Report 8942619 (Version 4)
Quarter: 2013Q2

REPORT INFORMATION
  Report Type: Spontaneous
  Country: US (occurrence: US)
  Receive Date: 20121204
  Receipt Date: 20130405
  Transmission Date: 20140414
  Serious: Yes (Hospitalization, Other)
  Sender: FDA-Public Use
  Company Number: US-INCYTE CORPORATION-2012IN002480

PATIENT
  Sex: Female

DRUGS (1)
  1. JAKAFI [Suspect]
     Indication: MYELOFIBROSIS
     Dosage: 20 MG, BID
     Route: 048
     Dates: start: 20120905, end: 2012

REACTIONS (6)
  - Splenomegaly [Unknown]
  - Haemoglobin decreased [Unknown]
  - Escherichia infection [Unknown]
  - Gait disturbance [Unknown]
  - Urinary tract infection [Unknown]
  - Contusion [Unknown]
